FAERS Safety Report 6509923-0 (Version None)
Quarter: 2009Q4

REPORT INFORMATION
  Report Type: 
  Country: None (occurrence: None)
  Receive Date: 20091222
  Receipt Date: 20091211
  Transmission Date: 20100525
  Serious: Yes (Hospitalization)
  Sender: FDA-Public Use
  Company Number: PHEH2009US17177

PATIENT
  Sex: Male

DRUGS (18)
  1. GLEEVEC [Suspect]
     Indication: CHRONIC MYELOID LEUKAEMIA
     Dosage: 400 MG, QD
     Route: 065
  2. GLEEVEC [Suspect]
     Dosage: 800 MG, QD
     Route: 065
  3. TASIGNA [Suspect]
     Indication: CHRONIC MYELOID LEUKAEMIA
     Dosage: 200 MG, BID
     Route: 048
     Dates: start: 20091005, end: 20091005
  4. TASIGNA [Suspect]
     Dosage: 400 MG, BID
     Dates: start: 20091006
  5. TASIGNA [Suspect]
     Dosage: 200 MG, BID
  6. LIPITOR [Concomitant]
     Dosage: UNK, UNK
     Route: 065
  7. LISINOPRIL [Concomitant]
     Dosage: UNK, UNK
     Route: 065
  8. MAGNESIUM [Concomitant]
     Dosage: UNK, UNK
     Route: 065
  9. TOPROL-XL [Concomitant]
     Dosage: UNK, UNK
     Route: 065
  10. VYTORIN [Concomitant]
     Dosage: UNK, UNK
     Route: 065
  11. PLAVIX [Concomitant]
     Dosage: UNK, UNK
     Route: 065
  12. ASPIRIN [Concomitant]
     Dosage: UNK, UNK
     Route: 065
  13. ZETIA [Concomitant]
     Dosage: 10 MG, QD
  14. POTASSIUM CHLORIDE [Concomitant]
     Dosage: 20 MEQ, UNK
  15. ZOCOR [Concomitant]
     Dosage: 40 MG, QD
  16. FENTANYL [Concomitant]
     Dosage: UNK, EVERY THREE DAYS
  17. ZOFRAN [Concomitant]
     Dosage: 8 MG, WITH EACH CHEMO PILL
     Route: 048
  18. PERCOCET [Concomitant]
     Dosage: 5/325MG. ONE TO TWO TABLETS EVERY THREE HOURS AS NEEDED

REACTIONS (33)
  - ACTIVITIES OF DAILY LIVING IMPAIRED [None]
  - ARTHRALGIA [None]
  - BLAST CRISIS IN MYELOGENOUS LEUKAEMIA [None]
  - BLOOD ALKALINE PHOSPHATASE INCREASED [None]
  - BLOOD BILIRUBIN INCREASED [None]
  - BRAIN NATRIURETIC PEPTIDE INCREASED [None]
  - CARDIAC FAILURE CONGESTIVE [None]
  - CHROMOSOME ANALYSIS ABNORMAL [None]
  - CHRONIC LYMPHOCYTIC LEUKAEMIA TRANSFORMATION [None]
  - DYSPNOEA [None]
  - DYSPNOEA PAROXYSMAL NOCTURNAL [None]
  - FAILURE TO THRIVE [None]
  - FIBRIN D DIMER INCREASED [None]
  - FLUID RETENTION [None]
  - FRUSTRATION [None]
  - HAEMOGLOBIN DECREASED [None]
  - HALLUCINATION [None]
  - HEADACHE [None]
  - HYPERTENSION [None]
  - LEUKAEMIC INFILTRATION [None]
  - MALAISE [None]
  - MARROW HYPERPLASIA [None]
  - NAUSEA [None]
  - OEDEMA PERIPHERAL [None]
  - ORTHOPNOEA [None]
  - PETECHIAE [None]
  - PLATELET COUNT DECREASED [None]
  - PYREXIA [None]
  - RASH PAPULAR [None]
  - TREATMENT NONCOMPLIANCE [None]
  - WEIGHT DECREASED [None]
  - WEIGHT INCREASED [None]
  - WHITE BLOOD CELL COUNT INCREASED [None]
